FAERS Safety Report 6171280-X (Version None)
Quarter: 2009Q2

REPORT INFORMATION
  Report Type: 
  Country: None (occurrence: None)
  Receive Date: 20090428
  Receipt Date: 20090428
  Transmission Date: 20091009
  Serious: No
  Sender: FDA-Public Use
  Company Number: None

PATIENT
  Sex: Female
  Weight: 48.0813 kg

DRUGS (1)
  1. LYRICA [Suspect]
     Indication: MULTIPLE SCLEROSIS
     Dosage: 50 MG 1 A NIGHT PO
     Route: 048
     Dates: start: 20080907, end: 20081107

REACTIONS (3)
  - DISORIENTATION [None]
  - INSOMNIA [None]
  - SOMNOLENCE [None]
